FAERS Safety Report 7512101-X (Version None)
Quarter: 2011Q2

REPORT INFORMATION
  Report Type: 
  Country: None (occurrence: None)
  Receive Date: 20110531
  Receipt Date: 20110527
  Transmission Date: 20111010
  Serious: Yes (Death)
  Sender: FDA-Public Use
  Company Number: US-ASTRAZENECA-2011SE32844

PATIENT
  Age: 40 Year
  Sex: Female

DRUGS (9)
  1. NEURONTIN [Concomitant]
     Route: 048
  2. NEURONTIN [Concomitant]
     Route: 048
  3. PREDNISONE [Concomitant]
     Route: 048
  4. SEROQUEL [Suspect]
     Route: 048
  5. DEPLIN [Concomitant]
     Route: 048
  6. DEPAKOTE [Concomitant]
     Route: 048
  7. SEROQUEL [Suspect]
     Indication: BIPOLAR DISORDER
     Route: 048
  8. ATIVAN [Concomitant]
     Route: 048
  9. BACLOFEN [Concomitant]
     Route: 048

REACTIONS (1)
  - DEATH [None]
